FAERS Safety Report 6512275-3 (Version None)
Quarter: 2009Q4

REPORT INFORMATION
  Report Type: 
  Country: None (occurrence: None)
  Receive Date: 20091222
  Receipt Date: 20090710
  Transmission Date: 20100525
  Serious: No
  Sender: FDA-Public Use
  Company Number: US-ASTRAZENECA-2009UW19438

PATIENT
  Age: 67 Year
  Sex: Female
  Weight: 103 kg

DRUGS (13)
  1. CRESTOR [Suspect]
     Route: 048
     Dates: start: 20090628, end: 20090708
  2. CRESTOR [Suspect]
     Route: 048
     Dates: start: 20090708
  3. ASACOL [Concomitant]
  4. MAGOX [Concomitant]
  5. BENICAR [Concomitant]
  6. TRIAMTERENE AND HYDROCHLOROTHIAZIDE [Concomitant]
  7. ALLOPURINOL [Concomitant]
  8. SINGULAIR [Concomitant]
  9. NEXIUM [Concomitant]
  10. LYRICA [Concomitant]
  11. CENTRIUM SILVER [Concomitant]
  12. CALCIUM [Concomitant]
  13. BEXTRUM [Concomitant]

REACTIONS (2)
  - FEELING ABNORMAL [None]
  - HEADACHE [None]
